FAERS Safety Report 6616250-X (Version None)
Quarter: 2010Q1

REPORT INFORMATION
  Report Type: 
  Country: None (occurrence: None)
  Receive Date: 20100305
  Receipt Date: 20100223
  Transmission Date: 20100710
  Serious: Yes (Other)
  Sender: FDA-Public Use
  Company Number: BR-WATSON-2010-02184

PATIENT
  Age: 33 Year
  Sex: Male

DRUGS (3)
  1. METHYLPREDNISOLONE ACETATE [Suspect]
     Indication: RETINAL DETACHMENT
     Dosage: 1 G, DAILY
     Dates: start: 20080701
  2. PREDNISONE TAB [Suspect]
     Indication: RETINAL DETACHMENT
     Dosage: 80 -120 MG, DAILY
     Dates: start: 20080701
  3. PREDNISONE TAB [Suspect]
     Dosage: 120 MG, DAILY

REACTIONS (1)
  - CHORIORETINOPATHY [None]
